FAERS Safety Report 5357792-7 (Version None)
Quarter: 2007Q2

REPORT INFORMATION
  Report Type: 
  Country: None (occurrence: None)
  Receive Date: 20070614
  Receipt Date: 20070606
  Transmission Date: 20071010
  Serious: Yes (Other)
  Sender: FDA-Public Use
  Company Number: US-PFIZER INC-2007047489

PATIENT
  Sex: Male
  Weight: 97.727 kg

DRUGS (5)
  1. DETROL LA [Suspect]
     Indication: NOCTURIA
  2. DOXYCYCLINE [Concomitant]
  3. ATENOLOL [Concomitant]
  4. BENAZEPRIL HYDROCHLORIDE [Concomitant]
  5. ALL OTHER THERAPEUTIC PRODUCTS [Concomitant]

REACTIONS (3)
  - BLOOD URINE PRESENT [None]
  - DYSURIA [None]
  - POLLAKIURIA [None]
